FAERS Safety Report 14505551 (Version 2)
Quarter: 2018Q2

REPORT INFORMATION
  Report Type: Spontaneous
  Country: FR (occurrence: FR)
  Receive Date: 20180208
  Receipt Date: 20180406
  Transmission Date: 20180711
  Serious: Yes (Other)
  Sender: FDA-Public Use
  Company Number: FR-MYLANLABS-2018M1007757

PATIENT
  Sex: Male

DRUGS (3)
  1. VENLAFAXINE MYLAN LP 37,5 MG, G?LULE ? LIB?RATION PROLONG?E [Suspect]
     Active Substance: VENLAFAXINE HYDROCHLORIDE
     Dosage: 37.5 MG, QD
     Dates: start: 201612
  2. VENLAFAXINE MYLAN LP 37,5 MG, G?LULE ? LIB?RATION PROLONG?E [Suspect]
     Active Substance: VENLAFAXINE HYDROCHLORIDE
     Dosage: 37.5 MG, QD
     Dates: start: 201701
  3. VENLAFAXINE MYLAN LP 37,5 MG, G?LULE ? LIB?RATION PROLONG?E [Suspect]
     Active Substance: VENLAFAXINE HYDROCHLORIDE
     Indication: PRODUCT USED FOR UNKNOWN INDICATION
     Dosage: 37.5 MG, QD
     Dates: start: 2006

REACTIONS (8)
  - Eye swelling [Recovering/Resolving]
  - Eyelid oedema [Recovering/Resolving]
  - Malaise [Recovering/Resolving]
  - Chills [Recovering/Resolving]
  - Suicidal ideation [Recovering/Resolving]
  - Asthenia [Recovering/Resolving]
  - Withdrawal syndrome [Recovering/Resolving]
  - Product quality issue [Unknown]
